FAERS Safety Report 24672790 (Version 2)
Quarter: 2024Q4

REPORT INFORMATION
  Report Type: Report from Study
  Country: US (occurrence: US)
  Receive Date: 20241128
  Receipt Date: 20241216
  Transmission Date: 20250115
  Serious: Yes (Other)
  Sender: JOHNSON AND JOHNSON
  Company Number: US-JNJFOC-20241153858

PATIENT
  Age: 46 Year
  Sex: Male
  Weight: 163 kg

DRUGS (3)
  1. SPRAVATO [Suspect]
     Active Substance: ESKETAMINE
     Indication: Depression
     Dosage: ^56 MG, 2 TOTAL DOSES^
     Route: 045
     Dates: start: 20240910, end: 20240912
  2. SPRAVATO [Suspect]
     Active Substance: ESKETAMINE
     Dosage: ^84 MG, 1 TOTAL DOSE, RECENT DOSE^
     Route: 045
     Dates: start: 20241120, end: 20241120
  3. SPRAVATO [Suspect]
     Active Substance: ESKETAMINE
     Dosage: ^84 MG, 16 TOTAL DOSES^
     Route: 045
     Dates: start: 20240917, end: 20241114

REACTIONS (5)
  - Ascites [Unknown]
  - Respiratory tract infection [Recovering/Resolving]
  - Hypoxia [Recovered/Resolved]
  - Blood pressure increased [Unknown]
  - Pallor [Unknown]

NARRATIVE: CASE EVENT DATE: 20241120
